FAERS Safety Report 8936336 (Version 3)
Quarter: 2013Q2

REPORT INFORMATION
  Report Type: Spontaneous
  Country: US (occurrence: US)
  Receive Date: 20121130
  Receipt Date: 20130528
  Transmission Date: 20140414
  Serious: No
  Sender: FDA-Public Use
  Company Number: US-ABBOTT-12P-163-1001905-00

PATIENT
  Sex: Female

DRUGS (1)
  1. ANDROGEL [Suspect]
     Indication: EXPOSURE VIA FATHER

REACTIONS (3)
  - Hair growth abnormal [Not Recovered/Not Resolved]
  - Enlarged clitoris [Unknown]
  - Accidental exposure to product [Unknown]
